FAERS Safety Report 5438032-7 (Version None)
Quarter: 2007Q3

REPORT INFORMATION
  Report Type: 
  Country: None (occurrence: None)
  Receive Date: 20070831
  Receipt Date: 20070823
  Transmission Date: 20080115
  Serious: Yes (Other)
  Sender: FDA-Public Use
  Company Number: US-SANOFI-SYNTHELABO-A03200702254

PATIENT
  Sex: Male
  Weight: 102.1 kg

DRUGS (7)
  1. OXYCONTIN [Concomitant]
     Dosage: UNK
     Route: 065
  2. ZANTAC 150 [Concomitant]
     Dosage: UNK
     Route: 065
  3. WELLBUTRIN [Concomitant]
     Dosage: UNK
     Route: 065
  4. GABAPENTIN [Concomitant]
     Dosage: UNK
     Route: 065
  5. INDOCIN [Concomitant]
     Dosage: UNK
     Route: 065
  6. AMBIEN [Suspect]
     Indication: INSOMNIA
     Route: 048
     Dates: start: 20030101, end: 20051121
  7. AMBIEN [Suspect]
     Route: 048

REACTIONS (6)
  - ABNORMAL BEHAVIOUR [None]
  - AMNESIA [None]
  - DRUG INEFFECTIVE [None]
  - EATING DISORDER [None]
  - SOMNAMBULISM [None]
  - WEIGHT INCREASED [None]
